FAERS Safety Report 8305617-X (Version None)
Quarter: 2012Q2

REPORT INFORMATION
  Report Type: 
  Country: None (occurrence: None)
  Receive Date: 20120423
  Receipt Date: 20120417
  Transmission Date: 20120825
  Serious: Yes (Other)
  Sender: FDA-Public Use
  Company Number: FI-SANOFI-AVENTIS-2012SA026764

PATIENT
  Age: 51 Year
  Sex: Male

DRUGS (3)
  1. APIDRA SOLOSTAR [Suspect]
     Dosage: START DATE: MANY YEARS AGO
     Route: 058
     Dates: start: 20120310
  2. SOLOSTAR [Suspect]
     Indication: DEVICE THERAPY
  3. APIDRA SOLOSTAR [Suspect]
     Dosage: START DATE: MANY YEARS AGO
     Route: 058

REACTIONS (5)
  - BLOOD GLUCOSE INCREASED [None]
  - PYREXIA [None]
  - EXPIRED DRUG ADMINISTERED [None]
  - DRUG DOSE OMISSION [None]
  - TREMOR [None]
